FAERS Safety Report 7809110-X (Version None)
Quarter: 2011Q4

REPORT INFORMATION
  Report Type: 
  Country: None (occurrence: None)
  Receive Date: 20111012
  Receipt Date: 20111003
  Transmission Date: 20120403
  Serious: Yes (Hospitalization)
  Sender: FDA-Public Use
  Company Number: US-SANOFI-AVENTIS-2011SA063385

PATIENT
  Age: 64 Year
  Sex: Male
  Weight: 79.6 kg

DRUGS (8)
  1. DOCETAXEL [Suspect]
     Route: 042
     Dates: start: 20110829, end: 20110829
  2. ERLOTINIB HYDROCHLORIDE [Suspect]
     Route: 048
     Dates: start: 20110829
  3. DEXAMETHASONE [Concomitant]
     Route: 065
  4. MORPHINE [Concomitant]
     Route: 065
  5. LISINOPRIL [Concomitant]
     Route: 048
  6. METOPROLOL TARTRATE [Concomitant]
     Route: 048
  7. CISPLATIN [Suspect]
     Route: 042
     Dates: start: 20110829, end: 20110829
  8. PIOGLITAZONE [Concomitant]
     Route: 048

REACTIONS (6)
  - HYPONATRAEMIA [None]
  - DYSPHAGIA [None]
  - FATIGUE [None]
  - PHARYNGEAL INFLAMMATION [None]
  - DEHYDRATION [None]
  - OESOPHAGEAL INFECTION [None]
